FAERS Safety Report 15324067 (Version 2)
Quarter: 2018Q4

REPORT INFORMATION
  Report Type: Spontaneous
  Country: JP (occurrence: JP)
  Receive Date: 20180828
  Receipt Date: 20181001
  Transmission Date: 20190204
  Serious: Yes (Hospitalization)
  Sender: FDA-Public Use
  Company Number: JP-ROCHE-2110849

PATIENT
  Age: 69 Year
  Sex: Female
  Weight: 45 kg

DRUGS (9)
  1. GRANISETRON HYDROCHLORIDE. [Concomitant]
     Active Substance: GRANISETRON HYDROCHLORIDE
     Dosage: DOSAGE IS UNCERTAIN.
     Route: 065
     Dates: start: 20180411, end: 20180411
  2. DEXART [Concomitant]
     Active Substance: DEXAMETHASONE SODIUM PHOSPHATE
     Dosage: DOSAGE IS UNCERTAIN.
     Route: 065
     Dates: start: 20180411, end: 20180411
  3. HERCEPTIN [Suspect]
     Active Substance: TRASTUZUMAB
     Indication: BREAST CANCER
     Route: 041
     Dates: start: 20180411, end: 20180411
  4. DOCETAXEL HYDRATE [Suspect]
     Active Substance: DOCETAXEL
     Indication: BREAST CANCER
     Route: 041
     Dates: start: 20180411, end: 20180411
  5. HERCEPTIN [Suspect]
     Active Substance: TRASTUZUMAB
     Route: 041
     Dates: start: 20180523, end: 20180814
  6. HERCEPTIN [Suspect]
     Active Substance: TRASTUZUMAB
     Route: 041
     Dates: start: 20180425, end: 20180425
  7. PERJETA [Suspect]
     Active Substance: PERTUZUMAB
     Dosage: FORM STRENGTH: 420 MG/14 ML
     Route: 041
     Dates: start: 20180523, end: 20180814
  8. PERJETA [Suspect]
     Active Substance: PERTUZUMAB
     Indication: BREAST CANCER
     Dosage: FORM STRENGTH: 420 MG/14 ML
     Route: 041
     Dates: start: 20180411, end: 20180411
  9. DOCETAXEL HYDRATE [Suspect]
     Active Substance: DOCETAXEL
     Route: 041
     Dates: start: 20180425, end: 20180814

REACTIONS (2)
  - Interstitial lung disease [Recovering/Resolving]
  - Infusion related reaction [Recovered/Resolved]

NARRATIVE: CASE EVENT DATE: 20180411
